FAERS Safety Report 11359760 (Version 2)
Quarter: 2015Q3

REPORT INFORMATION
  Report Type: Spontaneous
  Country: US (occurrence: US)
  Receive Date: 20150808
  Receipt Date: 20150810
  Transmission Date: 20151125
  Serious: Yes (Other)
  Sender: FDA-Public Use
  Company Number: US-CIPLA LTD.-2015US06263

PATIENT

DRUGS (3)
  1. LAMOTRIGINE. [Suspect]
     Active Substance: LAMOTRIGINE
     Dosage: UNK UNK, QD
  2. LAMOTRIGINE. [Suspect]
     Active Substance: LAMOTRIGINE
     Dosage: UNK MG, UNK
  3. LEVEPSY [Suspect]
     Active Substance: LEVETIRACETAM

REACTIONS (14)
  - Insomnia [Unknown]
  - Thrombocytopenia [Recovered/Resolved]
  - Aphasia [Unknown]
  - Eczema [Unknown]
  - Condition aggravated [Unknown]
  - Hunger [Unknown]
  - Weight increased [Unknown]
  - Anxiety [None]
  - Bradycardia [Unknown]
  - Hypotension [Unknown]
  - Migraine [Unknown]
  - Mental impairment [None]
  - Electroencephalogram abnormal [Recovering/Resolving]
  - Burning sensation [Unknown]
